FAERS Safety Report 7347993-0 (Version None)
Quarter: 2011Q1

REPORT INFORMATION
  Report Type: 
  Country: None (occurrence: None)
  Receive Date: 20110311
  Receipt Date: 20110301
  Transmission Date: 20110831
  Serious: Yes (Hospitalization, Disabling)
  Sender: FDA-Public Use
  Company Number: PHHY2011FR17926

PATIENT
  Sex: Female

DRUGS (8)
  1. ZOLPIDEM [Concomitant]
     Dosage: 10 MG, QD
     Route: 048
  2. BROMAZEPAM [Concomitant]
     Dosage: 1.5 MG, QD
     Route: 048
  3. BIPRETERAX [Concomitant]
     Dosage: 5 MG
     Route: 048
  4. AMLOR [Concomitant]
  5. ACEBUTOLOL [Concomitant]
     Dosage: 200 MG, BID
     Route: 048
  6. EFFERALGAN [Concomitant]
     Dosage: 500 MG,  AS NEEDED
     Route: 048
  7. CACIT VITAMINE D3 [Concomitant]
     Dosage: 1 DF, QD
  8. FEMARA [Suspect]
     Indication: BREAST CANCER FEMALE
     Dosage: 2.5 MG, QD
     Dates: start: 20090901

REACTIONS (9)
  - SENSORY DISTURBANCE [None]
  - EXTENSOR PLANTAR RESPONSE [None]
  - MONOPARESIS [None]
  - APHASIA [None]
  - DYSARTHRIA [None]
  - CEREBROVASCULAR ACCIDENT [None]
  - CAROTID ARTERIOSCLEROSIS [None]
  - VIITH NERVE PARALYSIS [None]
  - HEMIPLEGIA [None]
